FAERS Safety Report 18078601 (Version 1)
Quarter: 2020Q3

REPORT INFORMATION
  Report Type: Spontaneous
  Country: US (occurrence: US)
  Receive Date: 20200727
  Receipt Date: 20200727
  Transmission Date: 20201103
  Serious: Yes (Death)
  Sender: FDA-Public Use
  Company Number: None

PATIENT
  Age: 78 Year
  Sex: Male

DRUGS (20)
  1. DIPHENOXYLATE/ATROPINE 2.5 MG [Concomitant]
  2. POTASSIUM CITRATE ER 1620 MG [Concomitant]
  3. SODIUM BICARBONATE 650 MG [Concomitant]
  4. AMLODIPINE 10 MG [Concomitant]
     Active Substance: AMLODIPINE BESYLATE
  5. ALLOPURINOL 300 MG [Concomitant]
     Active Substance: ALLOPURINOL
  6. METRONIDAZOLE 500 MG [Concomitant]
     Active Substance: METRONIDAZOLE
  7. MIRTAZAPINE 7.5 MG [Concomitant]
     Active Substance: MIRTAZAPINE
  8. GEMFIBROZIL 600 MG [Concomitant]
     Active Substance: GEMFIBROZIL
  9. MIRTAZAPINE 15 MG [Concomitant]
     Active Substance: MIRTAZAPINE
  10. INLYTA [Suspect]
     Active Substance: AXITINIB
     Route: 048
     Dates: start: 20200401, end: 20200501
  11. ATORVASTATIN 20 MG [Concomitant]
     Active Substance: ATORVASTATIN
  12. CEFUROXIME 500 MG [Concomitant]
     Active Substance: CEFUROXIME
  13. LOPERAMIDE 2 MG [Concomitant]
     Active Substance: LOPERAMIDE
  14. MORPHINE SULFATE ER 15 MG [Concomitant]
  15. OXYCODONE 5 MG [Concomitant]
     Active Substance: OXYCODONE
  16. METFORMIN [Concomitant]
     Active Substance: METFORMIN HYDROCHLORIDE
  17. OXYCODONE 10 MG [Concomitant]
  18. CARVEDILOL 25 MG [Concomitant]
     Active Substance: CARVEDILOL
  19. HYDRALAZINE 25 MG [Concomitant]
     Active Substance: HYDRALAZINE HYDROCHLORIDE
  20. LISINOPRIL 40 MG [Concomitant]
     Active Substance: LISINOPRIL

REACTIONS (1)
  - Neoplasm malignant [None]

NARRATIVE: CASE EVENT DATE: 20200726
